FAERS Safety Report 7963121-2 (Version None)
Quarter: 2011Q4

REPORT INFORMATION
  Report Type: 
  Country: None (occurrence: None)
  Receive Date: 20111207
  Receipt Date: 20111201
  Transmission Date: 20120403
  Serious: Yes (Hospitalization)
  Sender: FDA-Public Use
  Company Number: US-ROCHE-1018508

PATIENT
  Sex: Male
  Weight: 76 kg

DRUGS (19)
  1. PREDNISONE TAB [Concomitant]
  2. POTASSIUM CHLORIDE [Concomitant]
  3. METOPROLOL TARTRATE [Concomitant]
  4. AVASTIN [Suspect]
     Indication: OESOPHAGEAL CANCER METASTATIC
     Dates: start: 20110517, end: 20111115
  5. OXALIPLATIN [Suspect]
     Indication: OESOPHAGEAL CANCER METASTATIC
     Dates: start: 20110517, end: 20111115
  6. LISINOPRIL [Concomitant]
  7. LOMOTIL [Concomitant]
  8. XELODA [Suspect]
     Indication: OESOPHAGEAL CANCER METASTATIC
     Dates: start: 20110517, end: 20111129
  9. PRILOSEC [Concomitant]
  10. DECADRON [Concomitant]
  11. DTO [Concomitant]
  12. DICYCLOMINE [Concomitant]
  13. COMPAZINE [Concomitant]
  14. OXYCODONE HCL [Concomitant]
  15. LORAZEPAM [Concomitant]
  16. METHYLPHENIDATE [Concomitant]
  17. ZOFRAN [Concomitant]
  18. HERCEPTIN [Suspect]
     Indication: OESOPHAGEAL CANCER METASTATIC
     Dates: start: 20110510, end: 20111115
  19. ACTOS [Concomitant]

REACTIONS (8)
  - VOMITING [None]
  - DEHYDRATION [None]
  - BLOOD GLUCOSE INCREASED [None]
  - HYPOPHAGIA [None]
  - ABDOMINAL PAIN UPPER [None]
  - BLOOD SODIUM DECREASED [None]
  - NAUSEA [None]
  - WHITE BLOOD CELL COUNT DECREASED [None]
